FAERS Safety Report 25281878 (Version 1)
Quarter: 2025Q2

REPORT INFORMATION
  Report Type: Report from Study
  Country: CA (occurrence: CA)
  Receive Date: 20250508
  Receipt Date: 20250508
  Transmission Date: 20250717
  Serious: Yes (Other)
  Sender: DR REDDYS
  Company Number: CA-DRL-USA-CAN/2025/05/006678

PATIENT
  Sex: Female

DRUGS (1)
  1. ZOLEDRONIC ACID [Suspect]
     Active Substance: ZOLEDRONIC ACID
     Indication: Osteoporosis
     Route: 065
     Dates: start: 20240429

REACTIONS (4)
  - Pneumonia [Unknown]
  - Influenza [Unknown]
  - Temperature regulation disorder [Unknown]
  - Abdominal discomfort [Unknown]
